FAERS Safety Report 21779390 (Version 1)
Quarter: 2022Q4

REPORT INFORMATION
  Report Type: Spontaneous
  Country: US (occurrence: None)
  Receive Date: 20221226
  Receipt Date: 20221226
  Transmission Date: 20230113
  Serious: No
  Sender: FDA-Public Use
  Company Number: 2022A410195

PATIENT
  Sex: Female

DRUGS (2)
  1. FASLODEX [Suspect]
     Active Substance: FULVESTRANT
     Route: 030
  2. KISQALI [Suspect]
     Active Substance: RIBOCICLIB
     Route: 048

REACTIONS (4)
  - Disease progression [Unknown]
  - Abdominal pain [Unknown]
  - Hepatic neoplasm [Unknown]
  - Jaundice [Unknown]
